FAERS Safety Report 9291302 (Version 1)
Quarter: 2013Q2

REPORT INFORMATION
  Report Type: Spontaneous
  Country: CA (occurrence: None)
  Receive Date: 20130513
  Receipt Date: 20130513
  Transmission Date: 20140414
  Serious: Yes (Hospitalization, Other)
  Sender: FDA-Public Use
  Company Number: 2013P1005341

PATIENT
  Age: 36 Year
  Sex: Female

DRUGS (2)
  1. PHENYTOIN [Suspect]
  2. VALPROATE [Suspect]

REACTIONS (4)
  - Stevens-Johnson syndrome [None]
  - Drug reaction with eosinophilia and systemic symptoms [None]
  - Prerenal failure [None]
  - Overlap syndrome [None]
